FAERS Safety Report 21918404 (Version 1)
Quarter: 2023Q1

REPORT INFORMATION
  Report Type: Report from Study
  Country: BR (occurrence: BR)
  Receive Date: 20230127
  Receipt Date: 20230127
  Transmission Date: 20230418
  Serious: Yes (Other)
  Sender: FDA-Public Use
  Company Number: BR-CELLTRION INC.-2023BR001736

PATIENT

DRUGS (7)
  1. INFLIXIMAB [Suspect]
     Active Substance: INFLIXIMAB
     Indication: Rheumatoid arthritis
     Dosage: 1 OR 2 AMPOULES EVERY 2 MONTHS
     Route: 042
     Dates: start: 20220609, end: 20220711
  2. METHOTREXATE SODIUM [Concomitant]
     Active Substance: METHOTREXATE SODIUM
     Indication: Arthritis
     Dosage: INJETABLE
     Dates: start: 2013
  3. PRELONE [Concomitant]
     Active Substance: PREDNISOLONE
     Indication: Pain
     Dosage: 1 PILL PER DAY
     Route: 048
     Dates: start: 2022
  4. DICLOFENAC SODIUM\TRAMADOL HYDROCHLORIDE [Concomitant]
     Active Substance: DICLOFENAC SODIUM\TRAMADOL HYDROCHLORIDE
     Indication: Pain
     Dosage: 1 PILL PER DAY
     Route: 048
     Dates: start: 2022
  5. Motilex [Concomitant]
     Indication: Supplementation therapy
     Dosage: 1 PILL PER DAY
     Route: 048
     Dates: start: 2022
  6. FOLIC ACID [Concomitant]
     Active Substance: FOLIC ACID
     Dosage: 1 PILL PER DAY (INDICATION: FOR LIVER)
     Route: 048
     Dates: start: 2013
  7. XELJANZ [Concomitant]
     Active Substance: TOFACITINIB CITRATE
     Indication: Arthritis
     Dosage: 2 PILLS PER DAY
     Route: 048
     Dates: start: 2019

REACTIONS (4)
  - Rheumatoid arthritis [Not Recovered/Not Resolved]
  - Drug ineffective [Unknown]
  - Therapy interrupted [Unknown]
  - Product dispensing issue [Unknown]
